FAERS Safety Report 11742194 (Version 1)
Quarter: 2015Q4

REPORT INFORMATION
  Report Type: Spontaneous
  Country: US (occurrence: None)
  Receive Date: 20151113
  Receipt Date: 20151113
  Transmission Date: 20160304
  Serious: Yes (Life-Threatening, Hospitalization)
  Sender: FDA-Public Use
  Company Number: None

PATIENT
  Age: 76 Year
  Sex: Female
  Weight: 60 kg

DRUGS (18)
  1. CARVEDILOL. [Concomitant]
     Active Substance: CARVEDILOL
  2. ERGOCALCIFEROL. [Concomitant]
     Active Substance: ERGOCALCIFEROL
  3. VANCOMYCIN [Concomitant]
     Active Substance: VANCOMYCIN
  4. HYDRALAZINE [Concomitant]
     Active Substance: HYDRALAZINE HYDROCHLORIDE
  5. TRAMADOL. [Concomitant]
     Active Substance: TRAMADOL
  6. LIDOCAINE. [Concomitant]
     Active Substance: LIDOCAINE
  7. ELIQUIS [Suspect]
     Active Substance: APIXABAN
     Indication: ATRIAL FIBRILLATION
     Dosage: 1
     Route: 048
     Dates: start: 20151007, end: 20151110
  8. ACETAMINOPHEN. [Concomitant]
     Active Substance: ACETAMINOPHEN
  9. NIFEDIPINE. [Concomitant]
     Active Substance: NIFEDIPINE
  10. INSULIN [Concomitant]
     Active Substance: INSULIN NOS
  11. NEPHROCAPS [Concomitant]
     Active Substance: ASCORBIC ACID\BIOTIN\CYANOCOBALAMIN\FOLIC ACID\NIACIN\PANTOTHENIC ACID\PYRIDOXINE\RIBOFLAVIN\THIAMINE
  12. METRONIDAZOLE. [Concomitant]
     Active Substance: METRONIDAZOLE
  13. SIMVASTATIN. [Concomitant]
     Active Substance: SIMVASTATIN
  14. AMIODARONE [Concomitant]
     Active Substance: AMIODARONE
  15. DIGOXIN. [Concomitant]
     Active Substance: DIGOXIN
  16. ESOMEPRAZOLE [Concomitant]
     Active Substance: ESOMEPRAZOLE
  17. ARANESP [Concomitant]
     Active Substance: DARBEPOETIN ALFA
  18. ASPIRIN. [Concomitant]
     Active Substance: ASPIRIN

REACTIONS (3)
  - Abdominal pain [None]
  - Haematemesis [None]
  - Haematochezia [None]

NARRATIVE: CASE EVENT DATE: 20151110
